FAERS Safety Report 20648186 (Version 7)
Quarter: 2022Q4

REPORT INFORMATION
  Report Type: Other
  Country: CA (occurrence: None)
  Receive Date: 20220329
  Receipt Date: 20221122
  Transmission Date: 20230113
  Serious: Yes (Other)
  Sender: FDA-Public Use
  Company Number: CA-ROCHE-1849867

PATIENT
  Age: 63 Year
  Sex: Male
  Weight: 147 kg

DRUGS (18)
  1. ACTEMRA [Suspect]
     Active Substance: TOCILIZUMAB
     Indication: Rheumatoid arthritis
     Route: 042
     Dates: start: 20161011, end: 20180831
  2. ACTEMRA [Suspect]
     Active Substance: TOCILIZUMAB
     Route: 042
     Dates: start: 20171027
  3. ACTEMRA [Suspect]
     Active Substance: TOCILIZUMAB
     Route: 042
     Dates: start: 20180928
  4. LEFLUNOMIDE [Concomitant]
     Active Substance: LEFLUNOMIDE
     Indication: Product used for unknown indication
  5. FOLIC ACID [Concomitant]
     Active Substance: FOLIC ACID
     Indication: Product used for unknown indication
     Dosage: OD
  6. VITAMIN D3 [Concomitant]
     Active Substance: CHOLECALCIFEROL
     Indication: Product used for unknown indication
     Dosage: OD
  7. VITAMIN C [Concomitant]
     Active Substance: ASCORBIC ACID
     Indication: Product used for unknown indication
     Dosage: 2 TABS OD
  8. ALBUTEROL [Concomitant]
     Active Substance: ALBUTEROL
     Indication: Product used for unknown indication
  9. FLOVENT [Concomitant]
     Active Substance: FLUTICASONE PROPIONATE
     Indication: Product used for unknown indication
     Dosage: OD
  10. CRESTOR [Concomitant]
     Active Substance: ROSUVASTATIN CALCIUM
     Indication: Product used for unknown indication
  11. MOMETASONE [Concomitant]
     Active Substance: MOMETASONE
     Indication: Product used for unknown indication
  12. IRON [Concomitant]
     Active Substance: IRON
     Indication: Product used for unknown indication
  13. CALCIUM [Concomitant]
     Active Substance: CALCIUM
     Indication: Product used for unknown indication
  14. CEPHALEXIN [Concomitant]
     Active Substance: CEPHALEXIN
     Indication: Localised infection
     Route: 048
     Dates: start: 20210623, end: 20210630
  15. LAMISIL [Concomitant]
     Active Substance: TERBINAFINE HYDROCHLORIDE
     Indication: Fungal foot infection
     Dosage: ONGOING
     Route: 061
     Dates: start: 202012
  16. CANDESARTAN [Concomitant]
     Active Substance: CANDESARTAN
  17. CANDESARTAN [Concomitant]
     Active Substance: CANDESARTAN
  18. MODERNA COVID-19 VACCINE [Concomitant]
     Active Substance: ELASOMERAN
     Dosage: 17-MAR-2021 - SECOND SHOT
     Dates: start: 20210210

REACTIONS (25)
  - Tooth infection [Recovered/Resolved]
  - Blood cholesterol increased [Not Recovered/Not Resolved]
  - Blood pressure increased [Not Recovered/Not Resolved]
  - Cataract [Recovered/Resolved]
  - Toothache [Unknown]
  - Sinusitis [Unknown]
  - Nasal congestion [Unknown]
  - Sinus congestion [Unknown]
  - Lower respiratory tract congestion [Unknown]
  - Weight increased [Unknown]
  - Sinus disorder [Recovered/Resolved]
  - Dental caries [Unknown]
  - Investigation abnormal [Not Recovered/Not Resolved]
  - Blood pressure systolic increased [Unknown]
  - Weight decreased [Not Recovered/Not Resolved]
  - Blood pressure fluctuation [Unknown]
  - Vision blurred [Recovering/Resolving]
  - Tooth disorder [Not Recovered/Not Resolved]
  - Paranasal sinus hypersecretion [Recovering/Resolving]
  - Dyspnoea [Recovering/Resolving]
  - Gingivitis [Not Recovered/Not Resolved]
  - Oxygen saturation decreased [Unknown]
  - Body temperature increased [Unknown]
  - Diabetes mellitus [Unknown]
  - Stress [Unknown]

NARRATIVE: CASE EVENT DATE: 20170325
